FAERS Safety Report 10091335 (Version 2)
Quarter: 2014Q2

REPORT INFORMATION
  Report Type: Spontaneous
  Country: US (occurrence: US)
  Receive Date: 20140421
  Receipt Date: 20140421
  Transmission Date: 20141212
  Serious: No
  Sender: FDA-Public Use
  Company Number: US-GILEAD-2013-0067472

PATIENT
  Sex: Male

DRUGS (2)
  1. LETAIRIS [Suspect]
     Indication: PULMONARY HYPERTENSION
     Dosage: 10 MG, QD
     Route: 048
     Dates: start: 20120910
  2. LETAIRIS [Suspect]
     Indication: SARCOIDOSIS

REACTIONS (4)
  - Poor peripheral circulation [Unknown]
  - Oxygen saturation decreased [Unknown]
  - Dizziness [Unknown]
  - Asthenia [Unknown]
